FAERS Safety Report 17939222 (Version 1)
Quarter: 2020Q2

REPORT INFORMATION
  Report Type: Spontaneous
  Country: DE (occurrence: DE)
  Receive Date: 20200625
  Receipt Date: 20200625
  Transmission Date: 20200714
  Serious: Yes (Hospitalization)
  Sender: FDA-Public Use
  Company Number: DE-TEVA-2020-DE-1790889

PATIENT
  Age: 68 Year
  Sex: Male

DRUGS (9)
  1. ACICLOVIR [Concomitant]
     Active Substance: ACYCLOVIR
     Dosage: 1600 MILLIGRAM DAILY; 1-1-1-1
  2. BORTEZOMIB. [Suspect]
     Active Substance: BORTEZOMIB
     Dosage: NK MG, ACCORDING TO THE SCHEME
  3. RITUXIMAB. [Suspect]
     Active Substance: RITUXIMAB
     Dosage: NK MG, ACCORDING TO THE SCHEME
     Route: 065
  4. ATORVASTATIN [Concomitant]
     Active Substance: ATORVASTATIN
     Dosage: 10 MILLIGRAM DAILY;  0-0-1-0
  5. SALBUTAMOL [Concomitant]
     Active Substance: ALBUTEROL
     Dosage: 6 DOSAGE FORMS DAILY; 100 MCG, 2-2-2-0
  6. LIPEGFILGRASTIM [Suspect]
     Active Substance: LIPEGFILGRASTIM
     Dosage: NK MG, ACCORDING TO THE SCHEME
  7. EZETIMIB [Concomitant]
     Active Substance: EZETIMIBE
     Dosage: 10 MILLIGRAM DAILY; 0-0-1-0
  8. DOXORUBICIN [Suspect]
     Active Substance: DOXORUBICIN
     Dosage: NK MG, ACCORDING TO THE SCHEME
  9. CYCLOPHOSPHAMID [Suspect]
     Active Substance: CYCLOPHOSPHAMIDE
     Dosage: NK MG, ACCORDING TO THE SCHEME

REACTIONS (4)
  - Scrotal pain [Unknown]
  - Localised infection [Unknown]
  - Testicular swelling [Unknown]
  - Nocturia [Unknown]
